FAERS Safety Report 7513972-3 (Version None)
Quarter: 2011Q2

REPORT INFORMATION
  Report Type: 
  Country: None (occurrence: None)
  Receive Date: 20110531
  Receipt Date: 20110518
  Transmission Date: 20111010
  Serious: Yes (Other)
  Sender: FDA-Public Use
  Company Number: US-BAYER-2011-043363

PATIENT
  Age: 57 Year
  Sex: Female

DRUGS (4)
  1. COUMADIN [Concomitant]
  2. AVELOX [Suspect]
     Indication: BRONCHITIS
     Dosage: 400 MG, UNK
     Dates: start: 20110501
  3. ANTIBIOTICS [Concomitant]
     Indication: BRONCHITIS
  4. LASIX [Concomitant]

REACTIONS (6)
  - HYPERSENSITIVITY [None]
  - DYSPHONIA [None]
  - SWELLING FACE [None]
  - DYSPNOEA [None]
  - SWOLLEN TONGUE [None]
  - VIITH NERVE PARALYSIS [None]
